FAERS Safety Report 5102000-5 (Version None)
Quarter: 2006Q3

REPORT INFORMATION
  Report Type: 
  Country: None (occurrence: None)
  Receive Date: 20060731
  Receipt Date: 20060511
  Transmission Date: 20061208
  Serious: No
  Sender: FDA-Public Use
  Company Number: 2006PV013683

PATIENT
  Age: 38 Year
  Sex: Female
  Weight: 94.8018 kg

DRUGS (4)
  1. BYETTA [Suspect]
     Indication: DIABETES MELLITUS NON-INSULIN-DEPENDENT
     Dosage: SEE IMAGE
     Route: 058
     Dates: start: 20060301, end: 20060401
  2. BYETTA [Suspect]
     Indication: DIABETES MELLITUS NON-INSULIN-DEPENDENT
     Dosage: SEE IMAGE
     Route: 058
     Dates: start: 20060401
  3. CEFTIN [Suspect]
     Indication: URINARY TRACT INFECTION
     Dosage: PO
     Route: 048
     Dates: start: 20060401
  4. LANTUS [Concomitant]

REACTIONS (6)
  - CIRCUMORAL OEDEMA [None]
  - NAUSEA [None]
  - ORAL PRURITUS [None]
  - PIGMENTATION DISORDER [None]
  - STOMATITIS [None]
  - URINARY TRACT INFECTION [None]
